FAERS Safety Report 9340996 (Version 1)
Quarter: 2013Q2

REPORT INFORMATION
  Report Type: Spontaneous
  Country: FR (occurrence: FR)
  Receive Date: 20130610
  Receipt Date: 20130610
  Transmission Date: 20140414
  Serious: Yes (Life-Threatening, Other)
  Sender: FDA-Public Use
  Company Number: FR-ASTRAZENECA-2013SE40917

PATIENT
  Age: 73 Year
  Sex: Male

DRUGS (6)
  1. BRILIQUE [Suspect]
     Route: 048
     Dates: start: 20130102, end: 2013
  2. BRILIQUE [Suspect]
     Route: 048
     Dates: start: 2013, end: 20130429
  3. PLAVIX [Concomitant]
  4. KARDEGIC [Concomitant]
  5. TEMERIT [Concomitant]
  6. EZETROL [Concomitant]

REACTIONS (4)
  - Choking sensation [Recovered/Resolved]
  - Chest discomfort [Recovered/Resolved]
  - Fatigue [Recovered/Resolved]
  - Depression [Recovered/Resolved]
